FAERS Safety Report 15271315 (Version 1)
Quarter: 2018Q3

REPORT INFORMATION
  Report Type: Spontaneous
  Country: CA (occurrence: CA)
  Receive Date: 20180813
  Receipt Date: 20180813
  Transmission Date: 20181010
  Serious: Yes (Other)
  Sender: FDA-Public Use
  Company Number: CA-TAKEDA-2017TUS001615

PATIENT
  Sex: Female

DRUGS (4)
  1. PANTOPRAZOLE [Suspect]
     Active Substance: PANTOPRAZOLE
     Indication: PRODUCT USED FOR UNKNOWN INDICATION
     Dosage: 40 MG, BID
     Route: 065
  2. GRAVOL [Concomitant]
     Active Substance: DIMENHYDRINATE
     Dosage: UNK
  3. SYNTHROID [Concomitant]
     Active Substance: LEVOTHYROXINE SODIUM
     Dosage: UNK
  4. DEXILANT [Suspect]
     Active Substance: DEXLANSOPRAZOLE
     Indication: PRODUCT USED FOR UNKNOWN INDICATION
     Dosage: UNK
     Route: 065

REACTIONS (45)
  - Drug intolerance [Unknown]
  - Hyperglycaemia [Unknown]
  - Weight increased [Unknown]
  - Dehydration [Unknown]
  - Arrhythmia [Unknown]
  - Gastrointestinal disorder [Unknown]
  - Candida infection [Unknown]
  - Arthralgia [Unknown]
  - Rash [Not Recovered/Not Resolved]
  - Dysuria [Unknown]
  - Nasal congestion [Unknown]
  - Myalgia [Unknown]
  - Somnolence [Unknown]
  - Oropharyngeal pain [Unknown]
  - Memory impairment [Unknown]
  - Tremor [Unknown]
  - Swelling face [Unknown]
  - Asthma [Unknown]
  - Central obesity [Unknown]
  - Eye swelling [Unknown]
  - Gastric polyps [Unknown]
  - Tongue oedema [Unknown]
  - Tachycardia [Unknown]
  - Rectal obstruction [Unknown]
  - Sinusitis [Unknown]
  - Pharyngitis [Unknown]
  - Vulvitis [Unknown]
  - Choking [Unknown]
  - Hyperchlorhydria [Unknown]
  - Blood pressure increased [Unknown]
  - Chills [Unknown]
  - Increased appetite [Unknown]
  - Micturition urgency [Unknown]
  - Bursitis [Unknown]
  - Cough [Unknown]
  - Anxiety [Unknown]
  - Hiccups [Unknown]
  - Palpitations [Unknown]
  - Vertigo [Unknown]
  - Eye irritation [Unknown]
  - Muscle spasms [Unknown]
  - Skin lesion [Unknown]
  - Fatigue [Unknown]
  - Vision blurred [Unknown]
  - Stiff leg syndrome [Unknown]
